FAERS Safety Report 17257648 (Version 3)
Quarter: 2020Q1

REPORT INFORMATION
  Report Type: Spontaneous
  Country: PT (occurrence: PT)
  Receive Date: 20200110
  Receipt Date: 20200221
  Transmission Date: 20200409
  Serious: Yes (Hospitalization, Other)
  Sender: FDA-Public Use
  Company Number: PT-MYLANLABS-2020M1002225

PATIENT
  Age: 74 Year
  Sex: Female

DRUGS (6)
  1. PARACETAMOL [Suspect]
     Active Substance: ACETAMINOPHEN
     Indication: PRODUCT USED FOR UNKNOWN INDICATION
     Dosage: 1000 MILLIGRAM
     Route: 065
  2. ALENDRONATE [Suspect]
     Active Substance: ALENDRONATE SODIUM
     Indication: OSTEOPOROSIS
     Dosage: 70 MILLIGRAM, EVERY WEEK FOR 5 YEARS
     Route: 065
  3. VITAMIN D                          /00107901/ [Concomitant]
     Active Substance: ERGOCALCIFEROL
     Indication: OSTEOPOROSIS
     Dosage: 2800 INTERNATIONAL UNIT, EVERY WEEK, FOR ANOTHER FIVE YEARS
     Route: 065
  4. ALENDRONATE [Suspect]
     Active Substance: ALENDRONATE SODIUM
     Dosage: 10 MILLIGRAM, ONCE A DAY FOR 4 YEARS/10 MILLIGRAM DAILY
     Route: 048
  5. ALENDRONIC ACID W/COLECALCIFEROL [Suspect]
     Active Substance: ALENDRONATE SODIUM\CHOLECALCIFEROL
     Indication: OSTEOPOROSIS
     Dosage: 1 DOSAGE FORM, QW (ALENDRONATE 70MG + VITAMIN D 2800 IU WEEKLY)
     Route: 065
  6. METAMIZOLE MAGNESIUM [Concomitant]
     Active Substance: METAMIZOLE MAGNESIUM
     Indication: ARTHRALGIA
     Dosage: 575 MILLIGRAM
     Route: 065

REACTIONS (6)
  - Femur fracture [Unknown]
  - Oedema [Unknown]
  - Oedema peripheral [Unknown]
  - Pain [Unknown]
  - Atypical femur fracture [Unknown]
  - Arthralgia [Unknown]
